FAERS Safety Report 5170800-1 (Version None)
Quarter: 2006Q4

REPORT INFORMATION
  Report Type: 
  Country: None (occurrence: None)
  Receive Date: 20061205
  Receipt Date: 20061205
  Transmission Date: 20070319
  Serious: No
  Sender: FDA-Public Use
  Company Number: None

PATIENT
  Age: 78 Year
  Sex: Female

DRUGS (3)
  1. LUCENTIS [Suspect]
     Dosage: 4 WKS INTRAOCULAR
     Route: 031
     Dates: start: 20060825
  2. LUCENTIS [Suspect]
     Dosage: 4 WKS INTRAOCULAR
     Route: 031
     Dates: start: 20061003
  3. LUCENTIS [Suspect]
     Dosage: 4 WKS INTRAOCULAR
     Route: 031
     Dates: start: 20061030

REACTIONS (2)
  - DARK CIRCLES UNDER EYES [None]
  - INJECTION SITE REACTION [None]
